FAERS Safety Report 8906553 (Version 1)
Quarter: 2012Q4

REPORT INFORMATION
  Report Type: 
  Country: US (occurrence: US)
  Receive Date: 20121114
  Receipt Date: 20121114
  Transmission Date: 20130627
  Serious: No
  Sender: FDA-Public Use
  Company Number: US-ASTRAZENECA-2012SE83823

PATIENT
  Age: 61 Year
  Sex: Female
  Weight: 62.6 kg

DRUGS (3)
  1. NEXIUM [Suspect]
     Indication: GASTROOESOPHAGEAL REFLUX DISEASE
     Route: 048
     Dates: start: 201209, end: 201209
  2. GAVISCON [Suspect]
     Dosage: PRN
     Route: 065
  3. PREMPRO [Concomitant]
     Indication: HORMONE REPLACEMENT THERAPY

REACTIONS (2)
  - Rash [Not Recovered/Not Resolved]
  - Drug dose omission [Unknown]
